FAERS Safety Report 19388531 (Version 1)
Quarter: 2021Q2

REPORT INFORMATION
  Report Type: Spontaneous
  Country: US (occurrence: US)
  Receive Date: 20210607
  Receipt Date: 20210607
  Transmission Date: 20210717
  Serious: No
  Sender: FDA-Public Use
  Company Number: US-PERRIGO-21US004534

PATIENT
  Age: 72 Year
  Sex: Female
  Weight: 61.22 kg

DRUGS (2)
  1. IRBESARTAN. [Concomitant]
     Active Substance: IRBESARTAN
     Indication: HYPERTENSION
     Dosage: UNK
     Route: 065
  2. MINOXIDIL. [Suspect]
     Active Substance: MINOXIDIL
     Indication: ALOPECIA
     Dosage: 1 CAPFUL, BID
     Route: 061
     Dates: start: 20210324, end: 20210326

REACTIONS (5)
  - Incorrect dose administered [Recovered/Resolved]
  - Hair colour changes [Recovering/Resolving]
  - Product administered at inappropriate site [Recovered/Resolved]
  - Product administration error [Recovered/Resolved]
  - Inappropriate schedule of product administration [Recovered/Resolved]

NARRATIVE: CASE EVENT DATE: 20210324
